FAERS Safety Report 8237467-7 (Version None)
Quarter: 2012Q1

REPORT INFORMATION
  Report Type: 
  Country: None (occurrence: None)
  Receive Date: 20120327
  Receipt Date: 20120319
  Transmission Date: 20120608
  Serious: Yes (Hospitalization, Other)
  Sender: FDA-Public Use
  Company Number: PHHY2012GB024589

PATIENT
  Age: 48 Year
  Sex: Male

DRUGS (6)
  1. CHLORTHALIDONE [Concomitant]
     Indication: SODIUM RETENTION
     Dosage: TITRATED UPTO 50 MG, UNK
  2. CHLORTHALIDONE [Concomitant]
     Dosage: 25 MG, UNK
  3. LISINOPRIL [Concomitant]
  4. LERCANIDIPINE [Concomitant]
  5. SPIRONOLACTONE [Suspect]
     Dosage: 100 MG, UNK
     Dates: start: 20090101
  6. SPIRONOLACTONE [Suspect]
     Indication: HYPERTENSION
     Dates: start: 20060101

REACTIONS (5)
  - DRUG INEFFECTIVE [None]
  - MUSCULAR WEAKNESS [None]
  - GYNAECOMASTIA [None]
  - RHABDOMYOLYSIS [None]
  - HYPOKALAEMIA [None]
